FAERS Safety Report 5291370-3 (Version None)
Quarter: 2007Q2

REPORT INFORMATION
  Report Type: 
  Country: None (occurrence: None)
  Receive Date: 20070402
  Receipt Date: 20070326
  Transmission Date: 20071010
  Serious: Yes (Death, Hospitalization, Other)
  Sender: FDA-Public Use
  Company Number: 2006SP008115

PATIENT
  Age: 63 Year
  Sex: Male

DRUGS (5)
  1. TEMOZOLOMIDE (S-P) (TEMOZOLOMIDE) [Suspect]
     Indication: MALIGNANT GLIOMA
     Dosage: 200 MG; QD; PO
     Route: 048
     Dates: start: 20061101, end: 20061105
  2. TEMOZOLOMIDE (S-P) (TEMOZOLOMIDE) [Suspect]
     Indication: RECURRENT CANCER
     Dosage: 200 MG; QD; PO
     Route: 048
     Dates: start: 20061101, end: 20061105
  3. PROCARBAZINE [Concomitant]
  4. CCNU [Concomitant]
  5. VINCRISTINE [Concomitant]

REACTIONS (13)
  - BLOOD CULTURE POSITIVE [None]
  - CONDITION AGGRAVATED [None]
  - CONVULSION [None]
  - GENERAL PHYSICAL HEALTH DETERIORATION [None]
  - GLIOBLASTOMA [None]
  - INFECTION [None]
  - LABORATORY TEST INTERFERENCE [None]
  - LOWER RESPIRATORY TRACT INFECTION [None]
  - NEUTROPHIL COUNT DECREASED [None]
  - PLATELET COUNT DECREASED [None]
  - PNEUMONIA [None]
  - STAPHYLOCOCCAL INFECTION [None]
  - UNEVALUABLE EVENT [None]
